FAERS Safety Report 12078705 (Version 1)
Quarter: 2016Q1

REPORT INFORMATION
  Report Type: Spontaneous
  Country: KY (occurrence: KY)
  Receive Date: 20160216
  Receipt Date: 20160216
  Transmission Date: 20160526
  Serious: Yes (Hospitalization)
  Sender: FDA-Public Use
  Company Number: KY-ACCORD-037741

PATIENT
  Age: 50 Year
  Sex: Male

DRUGS (1)
  1. ALLOPURINOL ACCORD [Suspect]
     Active Substance: ALLOPURINOL
     Indication: GOUT
     Dates: start: 20160111, end: 20160204

REACTIONS (3)
  - Rash [Unknown]
  - Furuncle [Unknown]
  - Skin burning sensation [Unknown]
